FAERS Safety Report 9216454 (Version 1)
Quarter: 2013Q2

REPORT INFORMATION
  Report Type: Spontaneous
  Country: GB (occurrence: GB)
  Receive Date: 20130408
  Receipt Date: 20130408
  Transmission Date: 20140414
  Serious: Yes (Death, Other)
  Sender: FDA-Public Use
  Company Number: PHFR2013GB001055

PATIENT
  Age: 48 Year
  Sex: Female
  Weight: 69 kg

DRUGS (3)
  1. AFINITOR [Suspect]
     Indication: RENAL CELL CARCINOMA
     Dosage: 10 MG, DAILY
     Route: 048
     Dates: start: 20121217, end: 20130206
  2. AFINITOR [Suspect]
     Dosage: UNK
  3. PREDNISOLONE [Concomitant]
     Dosage: 10 MG, DAILY
     Route: 048
     Dates: start: 20121217, end: 20130206

REACTIONS (15)
  - Haemoglobin decreased [Fatal]
  - Alanine aminotransferase increased [Fatal]
  - White blood cell count increased [Fatal]
  - Renal cell carcinoma [Fatal]
  - Malignant neoplasm progression [Fatal]
  - Metastases to thorax [Fatal]
  - Metastases to liver [Fatal]
  - Pneumonitis [Not Recovered/Not Resolved]
  - Dyspnoea [Not Recovered/Not Resolved]
  - Pleural effusion [Unknown]
  - Malaise [Unknown]
  - Fatigue [Unknown]
  - Blood urea increased [Unknown]
  - Blood creatinine increased [Unknown]
  - Blood potassium increased [Unknown]
